FAERS Safety Report 9419679 (Version 1)
Quarter: 2013Q3

REPORT INFORMATION
  Report Type: Spontaneous
  Country: US (occurrence: None)
  Receive Date: 20130723
  Receipt Date: 20130723
  Transmission Date: 20140515
  Serious: Yes (Other)
  Sender: FDA-Public Use
  Company Number: None

PATIENT
  Age: 41 Year
  Sex: Female
  Weight: 115.21 kg

DRUGS (4)
  1. GILENYA [Suspect]
     Indication: MULTIPLE SCLEROSIS
     Dosage: 1 CAPSULE DAILY PO
     Route: 048
     Dates: start: 201210
  2. VITAMIN D [Concomitant]
  3. VITAMIN B COMPLEX [Concomitant]
  4. MULTIVITAMAN [Concomitant]

REACTIONS (1)
  - Lymphocyte count increased [None]
